FAERS Safety Report 14149214 (Version 4)
Quarter: 2019Q4

REPORT INFORMATION
  Report Type: Report from Study
  Country: US (occurrence: US)
  Receive Date: 20171101
  Receipt Date: 20191015
  Transmission Date: 20200122
  Serious: Yes (Hospitalization, Other)
  Sender: FDA-Public Use
  Company Number: US-ALEXION-A201711935

PATIENT
  Age: 46 Year
  Sex: Female

DRUGS (2)
  1. SOLIRIS [Suspect]
     Active Substance: ECULIZUMAB
     Indication: ATYPICAL HAEMOLYTIC URAEMIC SYNDROME
     Dosage: 900 MG, QW
     Route: 042
     Dates: start: 20171003, end: 20171024
  2. SOLIRIS [Suspect]
     Active Substance: ECULIZUMAB
     Dosage: 1200 MG, Q2W
     Route: 065

REACTIONS (11)
  - Hospitalisation [Not Recovered/Not Resolved]
  - Respiratory failure [Not Recovered/Not Resolved]
  - Sepsis [Recovered/Resolved]
  - Serum sickness-like reaction [Recovering/Resolving]
  - Weight decreased [Unknown]
  - Pyrexia [Not Recovered/Not Resolved]
  - Hypertensive urgency [Not Recovered/Not Resolved]
  - Hypertensive encephalopathy [Recovered/Resolved]
  - Haptoglobin increased [Unknown]
  - Diarrhoea [Recovered/Resolved]
  - Nasopharyngitis [Unknown]

NARRATIVE: CASE EVENT DATE: 20171016
